FAERS Safety Report 4639048-0 (Version None)
Quarter: 2005Q2

REPORT INFORMATION
  Report Type: 
  Country: None (occurrence: None)
  Receive Date: 20050419
  Receipt Date: 20050317
  Transmission Date: 20051028
  Serious: Yes (Hospitalization)
  Sender: FDA-Public Use
  Company Number: JP-ROCHE-399712

PATIENT
  Age: 74 Year
  Sex: Male

DRUGS (3)
  1. TAMIFLU [Suspect]
     Route: 048
     Dates: start: 20050311, end: 20050314
  2. EXCEGRAN [Suspect]
     Indication: EPILEPSY
     Route: 048
     Dates: start: 20050215, end: 20050314
  3. UNSPECIFIED MEDICATIONS [Concomitant]
     Indication: PEPTIC ULCER
     Route: 048

REACTIONS (2)
  - PYREXIA [None]
  - STEVENS-JOHNSON SYNDROME [None]
